FAERS Safety Report 5120743-4 (Version None)
Quarter: 2006Q4

REPORT INFORMATION
  Report Type: 
  Country: None (occurrence: None)
  Receive Date: 20061003
  Receipt Date: 20061003
  Transmission Date: 20070319
  Serious: No
  Sender: FDA-Public Use
  Company Number: None

PATIENT
  Sex: Female
  Weight: 77.1115 kg

DRUGS (1)
  1. SERTRALINE HCL [Suspect]
     Indication: POST-TRAUMATIC STRESS DISORDER
     Dosage: 50 MG 1 1/2 QD
     Dates: start: 20060907

REACTIONS (3)
  - HEADACHE [None]
  - PHARMACEUTICAL PRODUCT COMPLAINT [None]
  - PHARYNGEAL OEDEMA [None]
